FAERS Safety Report 22058665 (Version 1)
Quarter: 2023Q1

REPORT INFORMATION
  Report Type: Spontaneous
  Country: US (occurrence: US)
  Receive Date: 20230303
  Receipt Date: 20230303
  Transmission Date: 20230418
  Serious: Yes (Hospitalization)
  Sender: FDA-Public Use
  Company Number: US-AUROBINDO-AUR-APL-2023-008948

PATIENT
  Age: 72 Year
  Sex: Male

DRUGS (12)
  1. PHENYLEPHRINE [Suspect]
     Active Substance: PHENYLEPHRINE HYDROCHLORIDE
     Indication: Hypotension
     Dosage: UNK
     Route: 040
  2. VASOPRESSIN [Suspect]
     Active Substance: VASOPRESSIN
     Indication: Hypotension
     Dosage: UNK
     Route: 065
  3. EPINEPHRINE [Suspect]
     Active Substance: EPINEPHRINE
     Indication: Hypotension
     Dosage: UNK
     Route: 040
  4. LANREOTIDE [Concomitant]
     Active Substance: LANREOTIDE
     Indication: Metastases to liver
     Dosage: 120 MILLIGRAM EVERY 4 WEEKS
     Route: 058
  5. LANREOTIDE [Concomitant]
     Active Substance: LANREOTIDE
     Dosage: 180 MILLIGRAM
     Route: 058
  6. OCTREOTIDE [Concomitant]
     Active Substance: OCTREOTIDE
     Indication: Hypotension
     Dosage: 50 MICROGRAM/HOUR
     Route: 065
  7. OCTREOTIDE [Concomitant]
     Active Substance: OCTREOTIDE
     Dosage: ((5 TO 10 ?G)
     Route: 040
  8. OCTREOTIDE [Concomitant]
     Active Substance: OCTREOTIDE
     Dosage: 200 MICROGRAM/HOUR
     Route: 065
  9. OCTREOTIDE [Concomitant]
     Active Substance: OCTREOTIDE
     Dosage: 100 MICROGRAM/HOUR
     Route: 065
  10. MILRINONE [Concomitant]
     Active Substance: MILRINONE
     Indication: Product used for unknown indication
     Dosage: UNK
     Route: 065
  11. NOREPINEPHRINE [Concomitant]
     Active Substance: NOREPINEPHRINE
     Indication: Product used for unknown indication
     Dosage: UNK
     Route: 065
  12. NITRIC OXIDE [Concomitant]
     Active Substance: NITRIC OXIDE
     Indication: Product used for unknown indication
     Dosage: UNK (40 PPM)
     Route: 065

REACTIONS (1)
  - Drug ineffective [Unknown]
